FAERS Safety Report 6522836-3 (Version None)
Quarter: 2009Q4

REPORT INFORMATION
  Report Type: 
  Country: None (occurrence: None)
  Receive Date: 20091230
  Receipt Date: 20091120
  Transmission Date: 20100525
  Serious: No
  Sender: FDA-Public Use
  Company Number: US-BAXTER-2008BH000193

PATIENT
  Age: 59 Year
  Sex: Male
  Weight: 65 kg

DRUGS (28)
  1. HEPARIN SODIUM INJECTION [Suspect]
     Indication: THROMBOSIS PROPHYLAXIS
     Route: 042
     Dates: start: 20071230, end: 20071230
  2. HEPARIN SODIUM INJECTION [Suspect]
     Route: 042
     Dates: start: 20071230, end: 20071230
  3. HEPARIN SODIUM INJECTION [Suspect]
     Route: 042
     Dates: start: 20071230, end: 20071230
  4. HEPARIN SODIUM INJECTION [Suspect]
     Route: 042
     Dates: start: 20071230, end: 20071230
  5. HEPARIN SODIUM INJECTION [Suspect]
     Route: 042
     Dates: start: 20071230, end: 20071230
  6. HEPARIN SODIUM INJECTION [Suspect]
     Route: 042
     Dates: start: 20071230, end: 20071230
  7. HEPARIN SODIUM INJECTION [Suspect]
     Route: 042
     Dates: start: 20071230, end: 20071230
  8. HEPARIN SODIUM INJECTION [Suspect]
     Route: 042
     Dates: start: 20071230, end: 20071230
  9. HEPARIN SODIUM INJECTION [Suspect]
     Route: 042
     Dates: start: 20071230, end: 20071230
  10. HEPARIN SODIUM INJECTION [Suspect]
     Route: 042
     Dates: start: 20071230, end: 20071230
  11. HEPARIN SODIUM INJECTION [Suspect]
     Route: 042
     Dates: start: 20071230, end: 20071230
  12. HEPARIN SODIUM INJECTION [Suspect]
     Route: 042
     Dates: start: 20071230, end: 20071230
  13. HEPARIN SODIUM INJECTION [Suspect]
     Route: 042
     Dates: start: 20071230, end: 20071230
  14. HEPARIN SODIUM INJECTION [Suspect]
     Route: 042
     Dates: start: 20071230, end: 20071230
  15. HEPARIN SODIUM INJECTION [Suspect]
     Route: 042
     Dates: start: 20071230, end: 20071230
  16. HEPARIN SODIUM INJECTION [Suspect]
     Route: 042
     Dates: start: 20071230, end: 20071230
  17. SODIUM CHLORIDE [Concomitant]
     Indication: DRUG USE FOR UNKNOWN INDICATION
     Route: 010
     Dates: start: 20071201, end: 20080101
  18. HECTOROL [Concomitant]
     Indication: MULTI-VITAMIN DEFICIENCY
     Route: 042
  19. ARANESP [Concomitant]
     Indication: ANAEMIA
     Route: 042
  20. AMLODIPINE [Concomitant]
     Indication: DRUG USE FOR UNKNOWN INDICATION
     Route: 065
  21. MINOXIDIL [Concomitant]
     Indication: DRUG USE FOR UNKNOWN INDICATION
     Route: 065
  22. LISINOPRIL [Concomitant]
     Indication: DRUG USE FOR UNKNOWN INDICATION
     Route: 065
  23. PREVACID [Concomitant]
     Indication: DRUG USE FOR UNKNOWN INDICATION
     Route: 065
  24. IMDUR [Concomitant]
     Indication: DRUG USE FOR UNKNOWN INDICATION
     Route: 065
  25. ASPIRIN [Concomitant]
     Indication: DRUG USE FOR UNKNOWN INDICATION
     Route: 065
  26. METHADONE [Concomitant]
     Indication: DRUG USE FOR UNKNOWN INDICATION
     Route: 065
  27. FABRAZYME [Concomitant]
     Indication: FABRY'S DISEASE
     Route: 042
  28. MULTI-VITAMINS [Concomitant]
     Indication: DRUG USE FOR UNKNOWN INDICATION
     Route: 048

REACTIONS (4)
  - DRY MOUTH [None]
  - HEADACHE [None]
  - NAUSEA [None]
  - VOMITING [None]
